FAERS Safety Report 8976799 (Version 1)
Quarter: 2012Q4

REPORT INFORMATION
  Report Type: 
  Country: SI (occurrence: SI)
  Receive Date: 20121220
  Receipt Date: 20121220
  Transmission Date: 20130627
  Serious: Yes (Hospitalization, Other)
  Sender: FDA-Public Use
  Company Number: SI-NOVOPROD-362304

PATIENT
  Age: 57 Year
  Sex: Male
  Weight: 91 kg

DRUGS (6)
  1. VICTOZA [Suspect]
     Indication: TYPE 2 DIABETES MELLITUS
     Dosage: 1.2 mg, qd
  2. VICTOZA [Suspect]
     Dosage: 1.8 mg, qd
     Route: 058
     Dates: start: 20120615, end: 20121010
  3. EXFORGE [Concomitant]
     Indication: HYPERTENSION
     Dosage: 160/10
     Dates: start: 20120217
  4. ASPIRIN [Concomitant]
     Indication: THROMBOSIS
     Dosage: 100 UNK, qd
     Dates: start: 2006
  5. CRESTOR [Concomitant]
     Indication: HYPERLIPIDAEMIA
     Dosage: 10 UNK, qd
     Dates: start: 2006
  6. ZALDIAR [Concomitant]
     Indication: PAIN
     Dosage: 37.5/325
     Dates: start: 201204

REACTIONS (2)
  - Diabetic enteropathy [Recovered/Resolved]
  - Gastrooesophageal reflux disease [Recovered/Resolved]
